FAERS Safety Report 8804863 (Version 2)
Quarter: 2012Q4

REPORT INFORMATION
  Report Type: 
  Country: US (occurrence: US)
  Receive Date: 20120924
  Receipt Date: 20121012
  Transmission Date: 20130627
  Serious: Yes (Other)
  Sender: FDA-Public Use
  Company Number: US-PFIZER INC-2012235070

PATIENT
  Age: 76 Year
  Sex: Female
  Weight: 58 kg

DRUGS (6)
  1. DILANTIN [Suspect]
     Indication: EPILEPSY
     Dosage: 200 mg, 2 capsules of 100mg once a day
     Route: 048
  2. BONIVA [Concomitant]
     Dosage: UNK
  3. LEVOTHYROXINE [Concomitant]
     Indication: THYROID DISORDER
     Dosage: UNK
  4. PYRIMIDINE DERIVATIVES [Concomitant]
     Indication: GASTRIC DISORDER
     Dosage: UNK
  5. CITALOPRAM [Concomitant]
     Dosage: 40 mg, UNK
     Route: 048
  6. ALPRAZOLAM [Concomitant]
     Indication: ANXIETY
     Dosage: UNK

REACTIONS (4)
  - Macular fibrosis [Unknown]
  - Cataract [Unknown]
  - Retinal disorder [Unknown]
  - Ocular hyperaemia [Unknown]
